FAERS Safety Report 8936626 (Version 4)
Quarter: 2013Q2

REPORT INFORMATION
  Report Type: Spontaneous
  Country: BR (occurrence: BR)
  Receive Date: 20121130
  Receipt Date: 20130517
  Transmission Date: 20140414
  Serious: Yes (Hospitalization)
  Sender: FDA-Public Use
  Company Number: BR-ROCHE-1160158

PATIENT
  Age: 78 Year
  Sex: Female
  Weight: 40 kg

DRUGS (4)
  1. BONVIVA [Suspect]
     Indication: OSTEOPOROTIC FRACTURE
     Route: 042
     Dates: start: 201207
  2. BONVIVA [Suspect]
     Route: 042
     Dates: start: 20121114
  3. HYDROCORTISONE [Suspect]
     Indication: HYPERSENSITIVITY
     Route: 065
  4. HYDROCORTISONE [Suspect]
     Indication: HYPERSENSITIVITY

REACTIONS (7)
  - Pruritus [Unknown]
  - Gastric disorder [Not Recovered/Not Resolved]
  - Syncope [Recovered/Resolved]
  - Diarrhoea [Recovered/Resolved]
  - Vomiting [Recovered/Resolved]
  - Erythema [Unknown]
  - Hypersensitivity [Not Recovered/Not Resolved]
